FAERS Safety Report 9819829 (Version 1)
Quarter: 2013Q4

REPORT INFORMATION
  Report Type: Spontaneous
  Country: US (occurrence: None)
  Receive Date: 20131223
  Receipt Date: 20131223
  Transmission Date: 20140711
  Serious: No
  Sender: FDA-Public Use
  Company Number: 220363

PATIENT
  Age: 56 Year
  Sex: Female

DRUGS (3)
  1. PICATO (0.015%) [Suspect]
     Indication: ACTINIC KERATOSIS
     Dosage: 1 IN 1 D, TOPICAL
     Route: 061
     Dates: start: 20130128, end: 20130130
  2. SYMBICORT (BUDESONIDE W/ FORMOTEROL FUMARATE) [Concomitant]
  3. VIT D (VITAMIN D NOS) [Concomitant]

REACTIONS (4)
  - Application site swelling [None]
  - Application site pruritus [None]
  - Application site erythema [None]
  - Drug administration error [None]
